FAERS Safety Report 10667857 (Version 1)
Quarter: 2014Q4

REPORT INFORMATION
  Report Type: Spontaneous
  Country: US (occurrence: US)
  Receive Date: 20141222
  Receipt Date: 20141222
  Transmission Date: 20150529
  Serious: No
  Sender: FDA-Public Use
  Company Number: US-BAUSCH-SYM-2014-20010

PATIENT
  Age: 21 Year
  Sex: Female

DRUGS (1)
  1. XENAZINE [Suspect]
     Active Substance: TETRABENAZINE
     Indication: CHOREA
     Dosage: HALF TABLET, TWICE DAILY
     Route: 048
     Dates: start: 20140409

REACTIONS (2)
  - Nausea [Unknown]
  - Medication error [Unknown]

NARRATIVE: CASE EVENT DATE: 201404
